FAERS Safety Report 23993216 (Version 2)
Quarter: 2025Q1

REPORT INFORMATION
  Report Type: Spontaneous
  Country: US (occurrence: US)
  Receive Date: 20240620
  Receipt Date: 20250211
  Transmission Date: 20250409
  Serious: No
  Sender: AMGEN
  Company Number: US-AMGEN-USASP2024119704

PATIENT
  Sex: Male

DRUGS (12)
  1. OTEZLA [Suspect]
     Active Substance: APREMILAST
     Indication: Psoriasis
     Dosage: 30 MILLIGRAM, BID
     Route: 048
     Dates: start: 20220630
  2. AMBIEN [Concomitant]
     Active Substance: ZOLPIDEM TARTRATE
     Route: 065
  3. FLOVENT HFA [Concomitant]
     Active Substance: FLUTICASONE PROPIONATE
     Route: 065
  4. LOSARTAN POTASSIUM [Concomitant]
     Active Substance: LOSARTAN POTASSIUM
     Route: 065
  5. MONTELUKAST [Concomitant]
     Active Substance: MONTELUKAST
     Route: 065
  6. VITAMINS [Concomitant]
     Active Substance: VITAMINS
     Dosage: UNK UNK, QD
     Route: 065
  7. PAXLOVID [Concomitant]
     Active Substance: NIRMATRELVIR\RITONAVIR
     Route: 065
  8. PRAVASTATIN [Concomitant]
     Active Substance: PRAVASTATIN
     Route: 065
  9. Red yeast plus [Concomitant]
     Route: 065
  10. SINGULAIR [Concomitant]
     Active Substance: MONTELUKAST SODIUM
     Route: 065
  11. ZOLPIDEM [Concomitant]
     Active Substance: ZOLPIDEM TARTRATE
     Route: 065
  12. ZYRTEC [Concomitant]
     Active Substance: CETIRIZINE HYDROCHLORIDE
     Route: 065

REACTIONS (3)
  - Therapy non-responder [Unknown]
  - Nausea [Not Recovered/Not Resolved]
  - Vomiting [Not Recovered/Not Resolved]
